FAERS Safety Report 8286385-7 (Version None)
Quarter: 2012Q2

REPORT INFORMATION
  Report Type: 
  Country: None (occurrence: None)
  Receive Date: 20120411
  Receipt Date: 20120402
  Transmission Date: 20120825
  Serious: Yes (Hospitalization)
  Sender: FDA-Public Use
  Company Number: 2012SP013234

PATIENT
  Age: 44 Year
  Sex: Female

DRUGS (5)
  1. SYCREST (ASENAPINE /05706901/) [Suspect]
     Indication: BIPOLAR DISORDER
     Dosage: 10 MG;BID;PO
     Route: 048
     Dates: start: 20111101
  2. RISPERIDONE [Concomitant]
  3. LANSOPRAZOLE [Concomitant]
  4. LITHIUM CARBONATE [Concomitant]
  5. LAMICTAL [Concomitant]

REACTIONS (9)
  - HYPOAESTHESIA ORAL [None]
  - NAUSEA [None]
  - PRODUCT TASTE ABNORMAL [None]
  - HYPOAESTHESIA [None]
  - DISEASE RECURRENCE [None]
  - BIPOLAR DISORDER [None]
  - TREATMENT NONCOMPLIANCE [None]
  - DYSGEUSIA [None]
  - PARAESTHESIA [None]
